FAERS Safety Report 5657248-8 (Version None)
Quarter: 2008Q1

REPORT INFORMATION
  Report Type: 
  Country: None (occurrence: None)
  Receive Date: 20080310
  Receipt Date: 20080303
  Transmission Date: 20080703
  Serious: Yes (Hospitalization, Other)
  Sender: FDA-Public Use
  Company Number: US-BRISTOL-MYERS SQUIBB COMPANY-14100135

PATIENT
  Sex: Female

DRUGS (3)
  1. GLUCOPHAGE [Suspect]
  2. BYETTA [Suspect]
  3. PRILOSEC [Suspect]

REACTIONS (4)
  - ABDOMINAL PAIN UPPER [None]
  - DIARRHOEA [None]
  - ENCEPHALITIS [None]
  - HYPOGLYCAEMIA [None]
